FAERS Safety Report 7304864-3 (Version None)
Quarter: 2011Q1

REPORT INFORMATION
  Report Type: 
  Country: None (occurrence: None)
  Receive Date: 20110222
  Receipt Date: 20110216
  Transmission Date: 20110831
  Serious: Yes (Hospitalization)
  Sender: FDA-Public Use
  Company Number: BR-US-EMD SERONO, INC.-7042725

PATIENT
  Sex: Female

DRUGS (10)
  1. AMYTRIPTYLINE [Concomitant]
  2. OMEPRAZOLE [Concomitant]
  3. REBIF [Suspect]
     Indication: RELAPSING-REMITTING MULTIPLE SCLEROSIS
     Dates: start: 20071008
  4. HYDROCHLOROTHIAZIDE [Concomitant]
  5. ACETYLSALICYLIC ACID [Concomitant]
  6. PARACETAMOL [Concomitant]
  7. AMLODIPINE [Concomitant]
  8. PAROXETINE [Concomitant]
  9. METOTREXATO [Concomitant]
  10. CAPTOPRIL [Concomitant]

REACTIONS (1)
  - BLINDNESS [None]
